FAERS Safety Report 19041985 (Version 2)
Quarter: 2021Q1

REPORT INFORMATION
  Report Type: Spontaneous
  Country: US (occurrence: US)
  Receive Date: 20210323
  Receipt Date: 20210330
  Transmission Date: 20210420
  Serious: No
  Sender: FDA-Public Use
  Company Number: US-GLAXOSMITHKLINE-US2021063250

PATIENT
  Age: 54 Year
  Sex: Male

DRUGS (2)
  1. FLONASE ALLERGY RELIEF [Suspect]
     Active Substance: FLUTICASONE PROPIONATE
     Dosage: UNK, SOMETIMES DAILY
     Dates: start: 202102
  2. FLONASE ALLERGY RELIEF [Suspect]
     Active Substance: FLUTICASONE PROPIONATE
     Indication: PRODUCT USED FOR UNKNOWN INDICATION
     Dosage: UNK, SOMETIMES DAILY
     Dates: start: 2020

REACTIONS (3)
  - Condition aggravated [Unknown]
  - Dysgeusia [Unknown]
  - Dysphonia [Unknown]

NARRATIVE: CASE EVENT DATE: 2021
